FAERS Safety Report 5475438-4 (Version None)
Quarter: 2007Q4

REPORT INFORMATION
  Report Type: 
  Country: None (occurrence: None)
  Receive Date: 20071003
  Receipt Date: 20070925
  Transmission Date: 20080405
  Serious: Yes (Hospitalization)
  Sender: FDA-Public Use
  Company Number: FR-JNJFOC-20070905040

PATIENT
  Sex: Female

DRUGS (9)
  1. RISPERDAL [Suspect]
     Indication: PSYCHOTIC DISORDER
     Route: 048
  2. ATARAX [Concomitant]
     Indication: DRUG USE FOR UNKNOWN INDICATION
  3. LOXAPAC [Concomitant]
     Indication: DRUG USE FOR UNKNOWN INDICATION
  4. PREVISCAN [Concomitant]
     Indication: DRUG USE FOR UNKNOWN INDICATION
  5. DIGOXIN [Concomitant]
     Indication: DRUG USE FOR UNKNOWN INDICATION
  6. LASIX [Concomitant]
     Indication: DRUG USE FOR UNKNOWN INDICATION
  7. LOXEN [Concomitant]
     Indication: DRUG USE FOR UNKNOWN INDICATION
  8. XATRAL [Concomitant]
     Indication: DRUG USE FOR UNKNOWN INDICATION
  9. DUPHALAC [Concomitant]
     Indication: DRUG USE FOR UNKNOWN INDICATION

REACTIONS (2)
  - PHOTOSENSITIVITY REACTION [None]
  - RASH MACULO-PAPULAR [None]
